FAERS Safety Report 19951566 (Version 1)
Quarter: 2021Q4

REPORT INFORMATION
  Report Type: Spontaneous
  Country: ES (occurrence: ES)
  Receive Date: 20211013
  Receipt Date: 20211013
  Transmission Date: 20220303
  Serious: Yes (Other)
  Sender: FDA-Public Use
  Company Number: None

PATIENT
  Age: 43 Year
  Sex: Male

DRUGS (5)
  1. FYCOMPA [Suspect]
     Active Substance: PERAMPANEL
     Indication: Epilepsy
     Route: 048
     Dates: start: 20210921
  2. LORMETAZEPAM [Concomitant]
     Active Substance: LORMETAZEPAM
     Indication: Epilepsy
     Route: 065
     Dates: start: 20190521
  3. SIMVASTATIN [Concomitant]
     Active Substance: SIMVASTATIN
     Indication: Type IIa hyperlipidaemia
     Dosage: FREQUENCY UNKNOWN
     Route: 065
     Dates: start: 20200916
  4. LAURAK [Concomitant]
     Indication: Epilepsy
     Dosage: FREQUENCY UNKNOWN
     Route: 065
     Dates: start: 20210430
  5. ESLICARBAZEPINE ACETATE [Concomitant]
     Active Substance: ESLICARBAZEPINE ACETATE
     Indication: Epilepsy
     Route: 065
     Dates: start: 20191127

REACTIONS (3)
  - Vomiting [Not Recovered/Not Resolved]
  - Vertigo [Not Recovered/Not Resolved]
  - Nausea [Not Recovered/Not Resolved]

NARRATIVE: CASE EVENT DATE: 20210921
